FAERS Safety Report 4692181-X (Version None)
Quarter: 2005Q2

REPORT INFORMATION
  Report Type: 
  Country: None (occurrence: None)
  Receive Date: 20050614
  Receipt Date: 20050603
  Transmission Date: 20051028
  Serious: Yes (Other)
  Sender: FDA-Public Use
  Company Number: 8010694

PATIENT
  Age: 49 Year
  Sex: Female

DRUGS (9)
  1. KEPPRA [Suspect]
     Indication: STATUS EPILEPTICUS
     Dosage: PO
     Route: 048
     Dates: start: 20050412, end: 20050412
  2. KEPPRA [Suspect]
     Indication: STATUS EPILEPTICUS
     Dosage: PO
     Route: 048
     Dates: start: 20050420
  3. PHENYTOIN [Concomitant]
  4. PHENOBARBITAL [Concomitant]
  5. CARBAMAZEPINE [Concomitant]
  6. FOSPHENYTOIN SODIUM [Concomitant]
  7. THIOPENTAL SODIUM [Concomitant]
  8. TEMESTA [Concomitant]
  9. CLONAZEPAM [Concomitant]

REACTIONS (3)
  - DRUG INEFFECTIVE [None]
  - DRUG RASH WITH EOSINOPHILIA AND SYSTEMIC SYMPTOMS [None]
  - STATUS EPILEPTICUS [None]
